FAERS Safety Report 17995657 (Version 12)
Quarter: 2022Q2

REPORT INFORMATION
  Report Type: Spontaneous
  Country: US (occurrence: US)
  Receive Date: 20200708
  Receipt Date: 20220401
  Transmission Date: 20220721
  Serious: Yes (Hospitalization, Other)
  Sender: FDA-Public Use
  Company Number: US-TEVA-2020-US-1799228

PATIENT
  Age: 63 Year
  Sex: Male
  Weight: 124 kg

DRUGS (45)
  1. VALSARTAN [Suspect]
     Active Substance: VALSARTAN
     Indication: Hypertension
     Dosage: DOSAGE : 160MG
     Route: 065
     Dates: start: 20160502, end: 20170602
  2. VALSARTAN [Suspect]
     Active Substance: VALSARTAN
     Indication: Hypertension
     Dosage: DOSAGE : 320MG
     Dates: start: 20170301, end: 20180729
  3. VALSARTAN [Suspect]
     Active Substance: VALSARTAN
     Dosage: DOSAGE : 160 MG
     Dates: start: 20160525, end: 20170320
  4. VALSARTAN [Suspect]
     Active Substance: VALSARTAN
     Indication: Hypertension
     Route: 065
  5. OMEPRAZOLE [Concomitant]
     Active Substance: OMEPRAZOLE
     Indication: Prophylaxis
     Dosage: 20.6 MG
     Route: 048
     Dates: start: 20120110, end: 20170714
  6. OMEPRAZOLE [Concomitant]
     Active Substance: OMEPRAZOLE
     Dosage: 40 MILLIGRAM DAILY;
     Dates: start: 20130501, end: 20150531
  7. METFORMIN HYDROCHLORIDE [Concomitant]
     Active Substance: METFORMIN HYDROCHLORIDE
     Indication: Diabetes mellitus
     Dosage: 500 MG TWICE A DAY BY MOUTH (WITH MEALS)
     Route: 048
     Dates: start: 20120402
  8. METFORMIN HYDROCHLORIDE [Concomitant]
     Active Substance: METFORMIN HYDROCHLORIDE
     Dosage: 1000 MG TWICE A DAY
     Route: 048
     Dates: start: 20130503, end: 20200313
  9. CARVEDILOL [Concomitant]
     Active Substance: CARVEDILOL
     Indication: Hypertension
     Dosage: 25MG TWICE A DAY WITH FOOD
     Route: 048
     Dates: start: 20110509, end: 20200313
  10. IBUPROFEN [Concomitant]
     Active Substance: IBUPROFEN
     Indication: Arthritis
     Dosage: 800MG THRICE A DAY
     Dates: start: 20120110, end: 20170328
  11. LANTUS [Concomitant]
     Active Substance: INSULIN GLARGINE
     Indication: Diabetes mellitus
     Dosage: 100 UNIT/ML VIAL
     Route: 058
     Dates: start: 20121127, end: 20180131
  12. DILTIAZEM [Concomitant]
     Active Substance: DILTIAZEM
     Indication: Hypertension
     Dosage: 240MG TWICE A DAY
     Dates: start: 20110509
  13. DILTIAZEM [Concomitant]
     Active Substance: DILTIAZEM
     Indication: Chest pain
  14. POTASSIUM [Concomitant]
     Active Substance: POTASSIUM
     Indication: Hypokalaemia
     Dosage: 8 MEQ THRICE A DAY
     Route: 048
     Dates: start: 20110509, end: 20180420
  15. HYDRALAZINE [Concomitant]
     Active Substance: HYDRALAZINE HYDROCHLORIDE
     Indication: Hypertension
     Dosage: 25MG 4 TIMES A DAY
     Route: 048
     Dates: start: 20111221
  16. FUROSEMIDE [Concomitant]
     Active Substance: FUROSEMIDE
     Indication: Hypertension
     Dosage: 40MG TWICE A DAY
     Route: 048
     Dates: start: 20111220, end: 20200308
  17. FUROSEMIDE [Concomitant]
     Active Substance: FUROSEMIDE
     Indication: Oedema
  18. BUSPIRONE HCL [Concomitant]
     Active Substance: BUSPIRONE HYDROCHLORIDE
     Indication: Anxiety
     Dosage: 5 TABLETS BY MOUTH DAILY
     Route: 048
     Dates: start: 20110509
  19. BUSPIRONE HCL [Concomitant]
     Active Substance: BUSPIRONE HYDROCHLORIDE
     Dosage: 10MG 3.5 PER DAY
     Dates: start: 20130523, end: 20200322
  20. FENOFIBRATE [Concomitant]
     Active Substance: FENOFIBRATE
     Indication: Blood cholesterol increased
     Dosage: 160 MILLIGRAM DAILY; TAKE 1 TABLET BY MOUTH DAILY WITH FOOD
     Route: 048
     Dates: start: 20120110, end: 20170108
  21. ALPRAZOLAM [Concomitant]
     Active Substance: ALPRAZOLAM
     Indication: Anxiety
     Dosage: 2 MILLIGRAM DAILY;
     Route: 048
     Dates: start: 20110509, end: 20200227
  22. AMITRIPTYLINE [Concomitant]
     Active Substance: AMITRIPTYLINE
     Indication: Depression
     Dosage: 50 MILLIGRAM DAILY; 1 TABLET AT BEDTIME FOR 1 WEEK, THEN 2 AT BEDTIME
     Route: 048
     Dates: start: 20120109, end: 20191014
  23. AMITRIPTYLINE [Concomitant]
     Active Substance: AMITRIPTYLINE
     Indication: Neuralgia
  24. KLOR-CON [Concomitant]
     Active Substance: POTASSIUM CHLORIDE
     Indication: Hypokalaemia
     Dosage: 8 MEQ THRICE A DAY
     Dates: start: 20130718, end: 20161219
  25. LOSARTAN POTASSIUM [Concomitant]
     Active Substance: LOSARTAN POTASSIUM
     Indication: Hypertension
     Dosage: 25 MILLIGRAM DAILY;
     Dates: start: 20141125, end: 20200306
  26. PRAVASTATIN SODIUM [Concomitant]
     Active Substance: PRAVASTATIN SODIUM
     Indication: Blood cholesterol increased
     Dosage: 40 MILLIGRAM DAILY;
     Dates: start: 20150727, end: 20161227
  27. PRAVASTATIN SODIUM [Concomitant]
     Active Substance: PRAVASTATIN SODIUM
     Indication: Blood triglycerides increased
  28. PROAIR HFA [Concomitant]
     Active Substance: ALBUTEROL SULFATE
     Indication: Bronchospasm
     Dosage: 90 MCG
     Dates: start: 20150419, end: 20180423
  29. ADVAIR DISKUS [Concomitant]
     Active Substance: FLUTICASONE PROPIONATE\SALMETEROL XINAFOATE
     Indication: Asthma
     Dosage: 250/50 INHALE 1 PUFF INTO THE LUNGS 2 TIMES DAILY
     Dates: start: 20150702, end: 20190115
  30. ADVAIR DISKUS [Concomitant]
     Active Substance: FLUTICASONE PROPIONATE\SALMETEROL XINAFOATE
     Indication: Chronic obstructive pulmonary disease
  31. ASPIRIN [Concomitant]
     Active Substance: ASPIRIN
     Dosage: 325 MG DAILY
     Route: 048
     Dates: end: 20161003
  32. BENZONATATE [Concomitant]
     Active Substance: BENZONATATE
     Indication: Cough
     Dosage: ONE CAPSULE THRICE DAILY AS NEEDED
     Route: 048
     Dates: start: 20140219
  33. DOCUSATE SODIUM [Concomitant]
     Active Substance: DOCUSATE SODIUM
     Dosage: 200 MILLIGRAM DAILY; 100MG TWICE A DAY
     Route: 048
     Dates: start: 20140804
  34. CLARITIN [Concomitant]
     Active Substance: LORATADINE
     Dosage: 10 MILLIGRAM DAILY; TAKE 1 CAPSULE BY MOUTH DAILY
     Route: 048
     Dates: start: 20120110
  35. MECLIZINE HYDROCHLORIDE [Concomitant]
     Active Substance: MECLIZINE HYDROCHLORIDE
     Indication: Dizziness
     Dosage: 25MG THRICE A DAY
     Route: 048
     Dates: start: 20110718
  36. MECLIZINE HYDROCHLORIDE [Concomitant]
     Active Substance: MECLIZINE HYDROCHLORIDE
     Dosage: DOSAGE: 50 MG  1 TABLET BID, AS NEEDED
     Route: 048
     Dates: start: 20110704, end: 20110704
  37. CIALIS [Concomitant]
     Active Substance: TADALAFIL
     Dosage: 2.5 MILLIGRAM DAILY; TAKE 1 TABLET BY MOUTH DAILY AS NEEDED
     Route: 048
     Dates: start: 20120110
  38. MUCINEX [Concomitant]
     Active Substance: GUAIFENESIN
     Dosage: 600 MG TWICE A DAY
     Route: 048
     Dates: start: 20161003, end: 20170207
  39. NOVOLOG [Concomitant]
     Active Substance: INSULIN ASPART
     Dosage: 100 UNIT/ML, 10-15 UNITS BEFORE BREAKFAST, LUNCH, AND DINNER
     Route: 058
     Dates: start: 20110509
  40. SINGULAIR [Concomitant]
     Active Substance: MONTELUKAST SODIUM
     Dosage: 10 MILLIGRAM DAILY; NIGHTLY
     Route: 048
     Dates: start: 20170324
  41. DOXYCYCLINE HYCLATE [Concomitant]
     Active Substance: DOXYCYCLINE HYCLATE
     Dosage: 100MG TWICE DAILY
     Route: 048
     Dates: start: 20120420
  42. LOVENOX [Concomitant]
     Active Substance: ENOXAPARIN SODIUM
     Dosage: 120 MG/0.8 ML  TWICE DAILY
     Route: 058
  43. FLUTICASONE PROPIONATE [Concomitant]
     Active Substance: FLUTICASONE PROPIONATE
     Dosage: 50 MCG/ACT, USE 1 SPRAY IN EACH NOSTRIL DAILY
     Route: 045
     Dates: start: 20120110
  44. COUMADIN [Concomitant]
     Active Substance: WARFARIN SODIUM
     Dosage: 7.5 MG DAILY EXCEPT 10 MG ON TUESDAYS OR AS DIRECTED
     Route: 048
  45. LEVEMIR [Concomitant]
     Active Substance: INSULIN DETEMIR
     Route: 058

REACTIONS (2)
  - Rectal cancer [Recovered/Resolved]
  - Iron deficiency anaemia [Recovered/Resolved]

NARRATIVE: CASE EVENT DATE: 20180301
